FAERS Safety Report 9300777 (Version 4)
Quarter: 2013Q4

REPORT INFORMATION
  Report Type: Spontaneous
  Country: US (occurrence: US)
  Receive Date: 20130521
  Receipt Date: 20131023
  Transmission Date: 20140711
  Serious: Yes (Other)
  Sender: FDA-Public Use
  Company Number: US-THROMBOGENICS INC-JET-2013-087

PATIENT
  Age: 68 Year
  Sex: Female

DRUGS (4)
  1. JETREA [Suspect]
     Indication: VITREOUS ADHESIONS
     Dosage: 0.125 MG, ONE TIME DOSE
     Route: 031
     Dates: start: 20130311, end: 20130311
  2. DIOVAN HCT [Concomitant]
     Indication: BLOOD PRESSURE
  3. ASPIRIN [Concomitant]
     Indication: PRODUCT USED FOR UNKNOWN INDICATION
     Dosage: 81 MG, QD
  4. MULTIVITAMIN                       /00097801/ [Concomitant]
     Indication: PRODUCT USED FOR UNKNOWN INDICATION
     Dosage: UNK, UNK, QD

REACTIONS (5)
  - Retinal injury [Recovered/Resolved]
  - Retinal injury [Recovered/Resolved]
  - Macular hole [Recovered/Resolved]
  - Disease progression [Recovered/Resolved]
  - Visual acuity reduced [Recovered/Resolved]
